FAERS Safety Report 12994423 (Version 1)
Quarter: 2016Q4

REPORT INFORMATION
  Report Type: Spontaneous
  Country: PL (occurrence: PL)
  Receive Date: 20161202
  Receipt Date: 20161202
  Transmission Date: 20170207
  Serious: Yes (Death, Other)
  Sender: FDA-Public Use
  Company Number: PL-ARIAD-2016PL007373

PATIENT
  Age: 55 Year
  Sex: Female

DRUGS (2)
  1. ICLUSIG [Suspect]
     Active Substance: PONATINIB
     Indication: CHRONIC MYELOID LEUKAEMIA
     Dosage: 45 MG, QD
     Route: 048
     Dates: start: 201512
  2. ICLUSIG [Suspect]
     Active Substance: PONATINIB
     Dosage: 45 MG, QD
     Route: 048
     Dates: start: 201607, end: 201608

REACTIONS (7)
  - Hypertension [Unknown]
  - Multiple organ dysfunction syndrome [Fatal]
  - Stem cell transplant [Unknown]
  - Skin toxicity [Unknown]
  - Chronic myeloid leukaemia recurrent [Unknown]
  - Hepatotoxicity [Unknown]
  - Infection [Unknown]

NARRATIVE: CASE EVENT DATE: 2016
